FAERS Safety Report 12623259 (Version 1)
Quarter: 2016Q3

REPORT INFORMATION
  Report Type: Spontaneous
  Country: US (occurrence: US)
  Receive Date: 20160804
  Receipt Date: 20160804
  Transmission Date: 20161109
  Serious: Yes (Other)
  Sender: FDA-Public Use
  Company Number: US-BAYER-2016-146360

PATIENT
  Sex: Male

DRUGS (2)
  1. CIPRO [Suspect]
     Active Substance: CIPROFLOXACIN HYDROCHLORIDE
     Dosage: UNK
     Dates: start: 200208
  2. LEVAQUIN [Suspect]
     Active Substance: LEVOFLOXACIN
     Dosage: UNK
     Dates: start: 200110

REACTIONS (11)
  - Burning sensation [None]
  - Asthenia [None]
  - Headache [None]
  - Injury [None]
  - Activities of daily living impaired [None]
  - Pain [None]
  - Hypoaesthesia [None]
  - Neuropathy peripheral [None]
  - Balance disorder [None]
  - Visual impairment [None]
  - Paraesthesia [None]
